FAERS Safety Report 6782217-4 (Version None)
Quarter: 2010Q2

REPORT INFORMATION
  Report Type: 
  Country: None (occurrence: None)
  Receive Date: 20100621
  Receipt Date: 20100611
  Transmission Date: 20101027
  Serious: Yes (Other)
  Sender: FDA-Public Use
  Company Number: US-JNJFOC-20100507212

PATIENT
  Age: 5 Year
  Sex: Male
  Weight: 19.05 kg

DRUGS (9)
  1. CHILDREN'S TYLENOL SUSPENSION [Suspect]
     Indication: MULTIPLE ALLERGIES
     Route: 048
  2. CHILDREN'S TYLENOL SUSPENSION [Suspect]
     Route: 048
  3. CHILDREN'S TYLENOL SUSPENSION [Suspect]
     Indication: PYREXIA
     Route: 048
  4. CHILDREN'S TYLENOL SUSPENSION [Suspect]
     Route: 048
  5. CHILDREN'S TYLENOL SUSPENSION [Suspect]
     Indication: EAR INFECTION
     Route: 048
  6. CHILDREN'S TYLENOL SUSPENSION [Suspect]
     Route: 048
  7. CHILDREN'S MOTRIN [Suspect]
  8. CHILDREN'S MOTRIN [Suspect]
     Indication: PYREXIA
  9. ZYRTEC [Suspect]
     Indication: MULTIPLE ALLERGIES
     Dosage: 1 TEASPOON ONCE A DAY
     Route: 048

REACTIONS (2)
  - PRODUCT CONTAMINATION PHYSICAL [None]
  - SPEECH DISORDER DEVELOPMENTAL [None]
